FAERS Safety Report 9643295 (Version 1)
Quarter: 2013Q4

REPORT INFORMATION
  Report Type: Spontaneous
  Country: FR (occurrence: FR)
  Receive Date: 20131024
  Receipt Date: 20131024
  Transmission Date: 20140711
  Serious: Yes (Hospitalization)
  Sender: FDA-Public Use
  Company Number: FR-SA-2013SA107060

PATIENT
  Age: 64 Year
  Sex: Male

DRUGS (11)
  1. TAVANIC [Suspect]
     Indication: OSTEITIS
     Route: 048
     Dates: start: 20131004, end: 20131005
  2. COAPROVEL [Suspect]
     Indication: HYPERTENSION
     Dosage: DOSE:1 UNIT(S)
     Route: 048
  3. BACTRIM [Suspect]
     Indication: OSTEITIS
     Dosage: DOSE:3 UNIT(S)
     Route: 048
     Dates: start: 20131004, end: 20131005
  4. TRAMADOL [Suspect]
     Indication: PAIN
     Route: 048
     Dates: start: 20131004, end: 20131005
  5. JANUMET [Concomitant]
  6. AMAREL [Concomitant]
  7. LANTUS [Concomitant]
  8. TEMERIT [Concomitant]
  9. CRESTOR [Concomitant]
  10. PLAVIX [Concomitant]
  11. DOLIPRANE [Concomitant]

REACTIONS (1)
  - Convulsion [Recovered/Resolved]
